FAERS Safety Report 21482889 (Version 2)
Quarter: 2023Q1

REPORT INFORMATION
  Report Type: Report from Study
  Country: US (occurrence: US)
  Receive Date: 20221020
  Receipt Date: 20230112
  Transmission Date: 20230418
  Serious: No
  Sender: FDA-Public Use
  Company Number: US-SA-SAC20221019001713

PATIENT
  Age: 63 Year
  Sex: Female
  Weight: 87.9 kg

DRUGS (16)
  1. AUBAGIO [Suspect]
     Active Substance: TERIFLUNOMIDE
     Indication: Multiple sclerosis
     Dosage: 14 MG, QD
     Route: 048
     Dates: start: 20220701
  2. PROBIOTIC BLEND [Concomitant]
  3. CALCIUM [Concomitant]
     Active Substance: CALCIUM
     Dosage: CALCIUM 600-D3 PLUS
  4. ZYRTEC [Concomitant]
     Active Substance: CETIRIZINE HYDROCHLORIDE
  5. MELOXICAM [Concomitant]
     Active Substance: MELOXICAM
  6. PROPRANOLOL HYDROCHLORIDE [Concomitant]
     Active Substance: PROPRANOLOL HYDROCHLORIDE
  7. ZOLPIDEM TARTRATE [Concomitant]
     Active Substance: ZOLPIDEM TARTRATE
  8. SYNTHROID [Concomitant]
     Active Substance: LEVOTHYROXINE SODIUM
  9. ESTRADIOL [Concomitant]
     Active Substance: ESTRADIOL
  10. PFIZER-BIONTECH COVID-19 VACCINE [Concomitant]
     Active Substance: TOZINAMERAN
  11. MAGNESIUM [Concomitant]
     Active Substance: MAGNESIUM
  12. IRBESARTAN [Concomitant]
     Active Substance: IRBESARTAN
  13. ZOLPIDEM [Concomitant]
     Active Substance: ZOLPIDEM TARTRATE
  14. VITAMIN C [Concomitant]
     Active Substance: ASCORBIC ACID
  15. IRON [Concomitant]
     Active Substance: IRON
  16. PROBIOTICS NOS [Concomitant]
     Active Substance: PROBIOTICS NOS

REACTIONS (1)
  - Blood test abnormal [Unknown]
